FAERS Safety Report 19354913 (Version 3)
Quarter: 2021Q4

REPORT INFORMATION
  Report Type: Report from Study
  Country: US (occurrence: US)
  Receive Date: 20210602
  Receipt Date: 20211201
  Transmission Date: 20220303
  Serious: Yes (Hospitalization, Other)
  Sender: FDA-Public Use
  Company Number: US-INSMED, INC.-2021-08612-US

PATIENT
  Sex: Female

DRUGS (1)
  1. ARIKAYCE [Suspect]
     Active Substance: AMIKACIN
     Indication: Mycobacterial infection
     Dosage: 590 MILLIGRAM, QOD
     Route: 055
     Dates: start: 20190415, end: 202108

REACTIONS (8)
  - Hospitalisation [Unknown]
  - Weight decreased [Recovering/Resolving]
  - Illness [Recovering/Resolving]
  - Hypoacusis [Unknown]
  - Tinnitus [Unknown]
  - Dyspnoea [Recovering/Resolving]
  - Therapy interrupted [Unknown]
  - Off label use [Unknown]
